FAERS Safety Report 7492872-1 (Version None)
Quarter: 2011Q2

REPORT INFORMATION
  Report Type: 
  Country: None (occurrence: None)
  Receive Date: 20110520
  Receipt Date: 20110512
  Transmission Date: 20111010
  Serious: Yes (Hospitalization, Other)
  Sender: FDA-Public Use
  Company Number: AU-BIOGENIDEC-2011BI007204

PATIENT
  Age: 48 Year
  Sex: Male

DRUGS (7)
  1. TYSABRI [Suspect]
     Indication: MULTIPLE SCLEROSIS
     Route: 042
     Dates: start: 20071107, end: 20110112
  2. AURORIX [Concomitant]
  3. VIAGRA [Concomitant]
  4. VITAMIN D [Concomitant]
     Route: 048
  5. BACLOFEN [Concomitant]
  6. VALPROATE SODIUM [Concomitant]
  7. MOVIPREP [Concomitant]

REACTIONS (1)
  - MYOCLONIC EPILEPSY [None]
